FAERS Safety Report 25075531 (Version 1)
Quarter: 2025Q1

REPORT INFORMATION
  Report Type: Spontaneous
  Country: CN (occurrence: CN)
  Receive Date: 20250313
  Receipt Date: 20250313
  Transmission Date: 20250408
  Serious: Yes (Death, Other)
  Sender: PFIZER
  Company Number: CN-PFIZER INC-PV202500027826

PATIENT
  Age: 8 Year
  Sex: Female

DRUGS (3)
  1. VORICONAZOLE [Suspect]
     Active Substance: VORICONAZOLE
     Indication: Antifungal treatment
     Dates: start: 20211208
  2. CASPOFUNGIN [Concomitant]
     Active Substance: CASPOFUNGIN
  3. HUMAN IMMUNOGLOBULIN G [Concomitant]
     Active Substance: HUMAN IMMUNOGLOBULIN G

REACTIONS (2)
  - Septic shock [Fatal]
  - Acute kidney injury [Fatal]

NARRATIVE: CASE EVENT DATE: 20211201
